FAERS Safety Report 8055783-9 (Version None)
Quarter: 2012Q1

REPORT INFORMATION
  Report Type: 
  Country: None (occurrence: None)
  Receive Date: 20120119
  Receipt Date: 20120111
  Transmission Date: 20120608
  Serious: Yes (Hospitalization)
  Sender: FDA-Public Use
  Company Number: US-JNJFOC-20120104210

PATIENT
  Sex: Female
  Weight: 81.65 kg

DRUGS (8)
  1. REMICADE [Suspect]
     Route: 042
  2. PREDNISONE [Concomitant]
     Route: 048
     Dates: start: 20111101, end: 20111201
  3. REMICADE [Suspect]
     Route: 042
     Dates: start: 20111116
  4. REMICADE [Suspect]
     Dosage: 3RD INFUSION
     Route: 042
     Dates: start: 20111228, end: 20111228
  5. REMICADE [Suspect]
     Indication: RHEUMATOID ARTHRITIS
     Route: 042
  6. REMICADE [Suspect]
     Indication: COLITIS ULCERATIVE
     Dosage: 3RD INFUSION
     Route: 042
     Dates: start: 20111228, end: 20111228
  7. REMICADE [Suspect]
     Route: 042
     Dates: start: 20111116
  8. PREDNISONE [Concomitant]
     Route: 048
     Dates: start: 20111201

REACTIONS (10)
  - ANORECTAL DISCOMFORT [None]
  - GAIT DISTURBANCE [None]
  - ANXIETY [None]
  - VERTIGO [None]
  - SENSATION OF PRESSURE [None]
  - NIGHT SWEATS [None]
  - SWELLING [None]
  - PAIN OF SKIN [None]
  - DRUG INEFFECTIVE [None]
  - FORMICATION [None]
